FAERS Safety Report 8991771 (Version 1)
Quarter: 2012Q4

REPORT INFORMATION
  Report Type: Report from Study
  Country: CA (occurrence: CA)
  Receive Date: 20121231
  Receipt Date: 20121231
  Transmission Date: 20130627
  Serious: Yes (Hospitalization)
  Sender: FDA-Public Use
  Company Number: CA-JNJFOC-20121212893

PATIENT
  Age: 62 Year
  Sex: Female
  Weight: 110 kg

DRUGS (2)
  1. REMICADE [Suspect]
     Indication: CROHN^S DISEASE
     Route: 042
     Dates: start: 20120416
  2. LANTUS INSULIN [Concomitant]
     Dosage: 24 units/day
     Route: 065

REACTIONS (3)
  - Electrolyte imbalance [Unknown]
  - Syncope [Unknown]
  - Haemoglobin abnormal [Unknown]
